FAERS Safety Report 7755097-8 (Version None)
Quarter: 2011Q3

REPORT INFORMATION
  Report Type: 
  Country: None (occurrence: None)
  Receive Date: 20110916
  Receipt Date: 20110906
  Transmission Date: 20111222
  Serious: No
  Sender: FDA-Public Use
  Company Number: US-PFIZER INC-2011215269

PATIENT
  Age: 54 Year
  Sex: Male

DRUGS (5)
  1. NORVASC [Suspect]
     Dosage: 5 MG, 1X/DAY
  2. TOPROL-XL [Suspect]
     Dosage: 100 MG, 1X/DAY
  3. NORCO [Suspect]
     Dosage: UNK
  4. SOMA [Suspect]
     Dosage: UNK
  5. SIMVASTATIN [Suspect]
     Dosage: UNK

REACTIONS (8)
  - DECREASED APPETITE [None]
  - HYPERHIDROSIS [None]
  - DIZZINESS [None]
  - POLLAKIURIA [None]
  - DIARRHOEA [None]
  - ABDOMINAL PAIN [None]
  - NAUSEA [None]
  - DYSGEUSIA [None]
